APPROVED DRUG PRODUCT: TRIAMCINOLONE ACETONIDE
Active Ingredient: TRIAMCINOLONE ACETONIDE
Strength: 0.025%
Dosage Form/Route: CREAM;TOPICAL
Application: A087932 | Product #001
Applicant: AMBIX LABORATORIES DIV ORGANICS CORP AMERICA
Approved: May 9, 1983 | RLD: No | RS: No | Type: DISCN